FAERS Safety Report 17726950 (Version 2)
Quarter: 2020Q2

REPORT INFORMATION
  Report Type: Spontaneous
  Country: US (occurrence: US)
  Receive Date: 20200430
  Receipt Date: 20200507
  Transmission Date: 20200714
  Serious: No
  Sender: FDA-Public Use
  Company Number: US-HORIZON-PRO-0098-2020

PATIENT
  Age: 30 Year
  Sex: Male

DRUGS (9)
  1. CYSTEINE [Concomitant]
     Active Substance: CYSTEINE
  2. CELLCEPT [Concomitant]
     Active Substance: MYCOPHENOLATE MOFETIL\MYCOPHENOLATE MOFETIL HYDROCHLORIDE
  3. LECITHIN [Concomitant]
     Active Substance: LECITHIN
  4. TACROLIMUS. [Concomitant]
     Active Substance: TACROLIMUS
  5. ZOLOFT [Concomitant]
     Active Substance: SERTRALINE HYDROCHLORIDE
  6. PROCYSBI [Suspect]
     Active Substance: CYSTEAMINE BITARTRATE
     Indication: CYSTINOSIS
     Dosage: 1050MG (14 CAPSULES) EVERY 12 HOURS
  7. MYCOPHENOLATE-MOFETIL [Concomitant]
     Active Substance: MYCOPHENOLATE MOFETIL
  8. GLIPIZIDE. [Concomitant]
     Active Substance: GLIPIZIDE
  9. LACTOSE [Concomitant]
     Active Substance: LACTOSE

REACTIONS (2)
  - Treatment noncompliance [Not Recovered/Not Resolved]
  - Stress [Not Recovered/Not Resolved]
